FAERS Safety Report 5479876-5 (Version None)
Quarter: 2007Q4

REPORT INFORMATION
  Report Type: 
  Country: None (occurrence: None)
  Receive Date: 20071008
  Receipt Date: 20071001
  Transmission Date: 20080405
  Serious: Yes (Hospitalization)
  Sender: FDA-Public Use
  Company Number: CN-ROXANE LABORATORIES, INC-2007-BP-22196RO

PATIENT
  Age: 54 Year
  Sex: Male

DRUGS (11)
  1. CITALOPRAM HYDROBROMIDE [Suspect]
     Indication: DEPRESSION
  2. FLUOXETINE [Suspect]
     Indication: DEPRESSION
     Dates: start: 19970101
  3. FLUOXETINE [Suspect]
  4. FLUOXETINE [Suspect]
     Dates: start: 20040901
  5. TRIFLUOPERAZINE [Suspect]
  6. TRIHEXYPHENIDYL HCL [Suspect]
  7. OLANZAPINE [Suspect]
     Route: 048
  8. ZIPRASIDONE HCL [Suspect]
     Indication: SCHIZOPHRENIA
     Route: 030
  9. ZIPRASIDONE HCL [Suspect]
     Route: 048
  10. AMISULPRIDE [Suspect]
  11. LORAZEPAM [Concomitant]
     Indication: CATATONIA
     Route: 048

REACTIONS (6)
  - DEPRESSION [None]
  - EXTRAPYRAMIDAL DISORDER [None]
  - HALLUCINATION, AUDITORY [None]
  - HALLUCINATION, VISUAL [None]
  - SCHIZOPHRENIA, CATATONIC TYPE [None]
  - URINARY RETENTION [None]
